FAERS Safety Report 9672034 (Version 1)
Quarter: 2013Q4

REPORT INFORMATION
  Report Type: Spontaneous
  Country: FR (occurrence: FR)
  Receive Date: 20131106
  Receipt Date: 20131106
  Transmission Date: 20140711
  Serious: Yes (Hospitalization)
  Sender: FDA-Public Use
  Company Number: FR-GLAXOSMITHKLINE-B0936887A

PATIENT
  Age: 71 Year
  Sex: Male

DRUGS (6)
  1. ZOPHREN [Suspect]
     Indication: PREMEDICATION
     Dosage: 8MG CYCLIC
     Route: 048
     Dates: start: 20130822, end: 20130822
  2. AZANTAC [Suspect]
     Indication: PREMEDICATION
     Dosage: 50MG CYCLIC
     Route: 042
     Dates: start: 20130822, end: 20130822
  3. PACLITAXEL [Suspect]
     Indication: SQUAMOUS CELL CARCINOMA OF LUNG
     Dosage: 145.8MG CYCLIC
     Route: 042
     Dates: start: 20130822, end: 20130822
  4. CARBOPLATIN [Suspect]
     Indication: SQUAMOUS CELL CARCINOMA OF LUNG
     Dosage: 564.91MG CYCLIC
     Route: 042
     Dates: start: 20130822, end: 20130822
  5. POLARAMINE [Suspect]
     Indication: PREMEDICATION
     Dosage: 5MG CYCLIC
     Route: 042
     Dates: start: 20130822, end: 20130822
  6. METHYLPREDNISOLONE [Suspect]
     Indication: PREMEDICATION
     Route: 042
     Dates: start: 20130822, end: 20130822

REACTIONS (3)
  - Anaphylactoid reaction [Recovered/Resolved]
  - Paraesthesia [Recovered/Resolved]
  - Blood pressure decreased [Recovered/Resolved]
